FAERS Safety Report 18067860 (Version 5)
Quarter: 2021Q2

REPORT INFORMATION
  Report Type: Spontaneous
  Country: JP (occurrence: JP)
  Receive Date: 20200724
  Receipt Date: 20210622
  Transmission Date: 20210717
  Serious: Yes (Hospitalization, Other)
  Sender: FDA-Public Use
  Company Number: JP-JNJFOC-20200727239

PATIENT
  Age: 70 Year
  Sex: Male
  Weight: 57.9 kg

DRUGS (28)
  1. SYMPROIC [Concomitant]
     Active Substance: NALDEMEDINE
     Dates: start: 20200628
  2. POVIGARGLE [Concomitant]
     Dates: start: 20200701
  3. DECADRON [Concomitant]
     Active Substance: DEXAMETHASONE
     Dates: start: 20200629
  4. NEOPHAGEN [CYSTEINE;GLYCINE;GLYCYRRHIZIC ACID] [Concomitant]
     Dates: start: 20200629, end: 20200709
  5. AMLODIPINE BESILATE [Concomitant]
     Active Substance: AMLODIPINE BESYLATE
  6. BICARBON [CALCIUM CHLORIDE DIHYDRATE;MAGNESIUM CHLORIDE HEXAHYDRATE;PO [Concomitant]
     Dates: start: 20200629, end: 20200704
  7. URSO [Concomitant]
     Active Substance: URSODIOL
     Dates: start: 20200629
  8. SODIUM CHLORIDE. [Concomitant]
     Active Substance: SODIUM CHLORIDE
     Dates: start: 20200702
  9. AZOSEMIDE [Concomitant]
     Active Substance: AZOSEMIDE
     Dates: start: 20200703
  10. GASCON [DIMETICONE] [Concomitant]
     Dates: start: 20200701
  11. OXYCODONE HYDROCHLORIDE TRIHYDRATE. [Concomitant]
     Active Substance: OXYCODONE HYDROCHLORIDE TRIHYDRATE
     Dates: start: 20200628
  12. LUNESTA [Concomitant]
     Active Substance: ESZOPICLONE
     Dates: start: 20200629
  13. MAGNESIUM OXIDE. [Concomitant]
     Active Substance: MAGNESIUM OXIDE
     Dates: start: 20200629
  14. LIXIANA OD [Concomitant]
     Active Substance: EDOXABAN TOSYLATE
     Dates: start: 20200703
  15. SOLDEM 1 [Concomitant]
     Active Substance: DEXTROSE\SODIUM CHLORIDE\SODIUM LACTATE
     Dates: start: 20200704, end: 20200704
  16. TRABECTEDIN [Suspect]
     Active Substance: TRABECTEDIN
     Indication: LEIOMYOSARCOMA METASTATIC
     Route: 041
     Dates: start: 20200629
  17. HEPARIN [Concomitant]
     Active Substance: HEPARIN SODIUM
     Dates: start: 20200628, end: 20200704
  18. CELECOX [Concomitant]
     Active Substance: CELECOXIB
     Dates: start: 20200628
  19. SUBPACK B [Concomitant]
     Dates: start: 20200704, end: 20200706
  20. FUTHAN [Concomitant]
     Active Substance: NAFAMOSTAT MESYLATE
     Dates: start: 20200704, end: 20200706
  21. DENOTAS [Concomitant]
     Active Substance: CALCIUM CARBONATE\CHOLECALCIFEROL\MAGNESIUM CARBONATE
     Dates: start: 20200628
  22. ENSURE H [Concomitant]
     Active Substance: CARBOHYDRATES\FATTY ACIDS\MINERALS\PROTEIN\VITAMINS
     Dates: start: 20200628
  23. OXYCODONE NX [Concomitant]
     Dates: start: 20200628, end: 20200630
  24. MORPHINE HYDROCHLORIDE TRIHYDRATE [Concomitant]
     Active Substance: MORPHINE HYDROCHLORIDE
     Dates: start: 20200704, end: 20200704
  25. PRECEDEX [Concomitant]
     Active Substance: DEXMEDETOMIDINE HYDROCHLORIDE
     Dates: start: 20200704
  26. ALOXI [Suspect]
     Active Substance: PALONOSETRON HYDROCHLORIDE
     Indication: PROPHYLAXIS OF NAUSEA AND VOMITING
     Route: 041
     Dates: start: 20200629, end: 20200629
  27. NEXIUM [Concomitant]
     Active Substance: ESOMEPRAZOLE MAGNESIUM
     Dates: start: 20200629
  28. METOCLOPRAMIDE. [Concomitant]
     Active Substance: METOCLOPRAMIDE
     Dates: start: 20200701

REACTIONS (7)
  - Hepatic function abnormal [Recovered/Resolved]
  - Acute kidney injury [Recovered/Resolved]
  - Diarrhoea [Unknown]
  - Tumour lysis syndrome [Recovered/Resolved]
  - Platelet count decreased [Recovered/Resolved]
  - Neutropenia [Recovered/Resolved]
  - Febrile neutropenia [Recovered/Resolved]

NARRATIVE: CASE EVENT DATE: 20200630
